FAERS Safety Report 4649725-3 (Version None)
Quarter: 2005Q2

REPORT INFORMATION
  Report Type: 
  Country: None (occurrence: None)
  Receive Date: 20050427
  Receipt Date: 20050425
  Transmission Date: 20051028
  Serious: Yes (Life-Threatening, Hospitalization)
  Sender: FDA-Public Use
  Company Number: 2005PK00673

PATIENT
  Age: 71 Year
  Sex: Female
  Weight: 78 kg

DRUGS (6)
  1. NOLVADEX [Suspect]
     Indication: BREAST CANCER
     Dosage: 20 MG DAILY PO
     Route: 048
     Dates: start: 20021122
  2. THROMBO ASS [Concomitant]
  3. ACEMIN [Concomitant]
  4. SELOKEN [Concomitant]
  5. SORTIS [Concomitant]
  6. LASIX [Concomitant]

REACTIONS (3)
  - ACUTE MYOCARDIAL INFARCTION [None]
  - DYSPNOEA [None]
  - PULMONARY OEDEMA [None]
